FAERS Safety Report 12495860 (Version 1)
Quarter: 2016Q2

REPORT INFORMATION
  Report Type: Spontaneous
  Country: US (occurrence: None)
  Receive Date: 20160623
  Receipt Date: 20160623
  Transmission Date: 20160815
  Serious: No
  Sender: FDA-Public Use
  Company Number: None

PATIENT
  Age: 35 Year
  Sex: Male

DRUGS (3)
  1. ORPHENADRINE [Concomitant]
     Active Substance: ORPHENADRINE
  2. TRAMADOL. [Concomitant]
     Active Substance: TRAMADOL
  3. GILENYA [Suspect]
     Active Substance: FINGOLIMOD HYDROCHLORIDE
     Indication: MULTIPLE SCLEROSIS
     Dosage: 1 CAP QD PO
     Route: 048
     Dates: start: 20160224, end: 201606

REACTIONS (1)
  - Disease recurrence [None]

NARRATIVE: CASE EVENT DATE: 201606
